FAERS Safety Report 5516178-2 (Version None)
Quarter: 2007Q4

REPORT INFORMATION
  Report Type: 
  Country: None (occurrence: None)
  Receive Date: 20071114
  Receipt Date: 20070104
  Transmission Date: 20080405
  Serious: No
  Sender: FDA-Public Use
  Company Number: A0633720A

PATIENT
  Age: 41 Year
  Sex: Male

DRUGS (1)
  1. COMMIT [Suspect]
     Route: 002
     Dates: start: 20070101

REACTIONS (7)
  - FACIAL PAIN [None]
  - GINGIVAL PAIN [None]
  - HICCUPS [None]
  - MOUTH ULCERATION [None]
  - ORAL PAIN [None]
  - PARAESTHESIA ORAL [None]
  - PHARMACEUTICAL PRODUCT COMPLAINT [None]
